FAERS Safety Report 12864643 (Version 1)
Quarter: 2016Q4

REPORT INFORMATION
  Report Type: Spontaneous
  Country: FR (occurrence: FR)
  Receive Date: 20161020
  Receipt Date: 20161020
  Transmission Date: 20170207
  Serious: Yes (Hospitalization)
  Sender: FDA-Public Use
  Company Number: FR-ACCORD-044923

PATIENT
  Age: 54 Year
  Sex: Male

DRUGS (10)
  1. FLUOROURACIL ACCORD [Suspect]
     Active Substance: FLUOROURACIL
     Indication: SQUAMOUS CELL CARCINOMA OF THE TONGUE
     Dosage: 1840 MG IN FOUR CYCLES
     Route: 042
     Dates: start: 20160808, end: 20160902
  2. ERBITUX [Suspect]
     Active Substance: CETUXIMAB
     Indication: SQUAMOUS CELL CARCINOMA OF THE TONGUE
     Dosage: 455 MG IN THREE CYCLES
     Route: 042
     Dates: start: 20160808, end: 20160830
  3. POLARAMINE [Concomitant]
     Active Substance: DEXCHLORPHENIRAMINE MALEATE
     Indication: PREMEDICATION
     Route: 042
     Dates: start: 20160808, end: 20160830
  4. DEPAKINE [Concomitant]
     Active Substance: VALPROATE SODIUM
  5. CARBOPLATIN HOSPIRA [Suspect]
     Active Substance: CARBOPLATIN
     Indication: SQUAMOUS CELL CARCINOMA OF THE TONGUE
     Route: 042
     Dates: start: 20160808, end: 20160830
  6. ORAMORPH [Concomitant]
     Active Substance: MORPHINE SULFATE
  7. AZANTAC [Concomitant]
     Active Substance: RANITIDINE HYDROCHLORIDE
     Indication: PREMEDICATION
     Route: 042
     Dates: start: 20160808, end: 20160830
  8. METHYLPREDNISOLONE MYLAN [Concomitant]
     Active Substance: METHYLPREDNISOLONE
     Indication: PREMEDICATION
     Dosage: 73 MG IN FOUR CYCLES
     Route: 042
     Dates: start: 20160808, end: 20160902
  9. ONDANSETRON ACCORD [Concomitant]
     Active Substance: ONDANSETRON
     Indication: PREMEDICATION
     Route: 042
     Dates: start: 20160808, end: 20160830
  10. DUROGESIC [Concomitant]
     Active Substance: FENTANYL

REACTIONS (6)
  - Stomatitis [Recovering/Resolving]
  - Somnolence [Unknown]
  - Asterixis [Recovered/Resolved]
  - Skin fissures [Recovering/Resolving]
  - Mouth ulceration [Unknown]
  - Lip ulceration [Unknown]

NARRATIVE: CASE EVENT DATE: 20160902
